FAERS Safety Report 5188276-7 (Version None)
Quarter: 2006Q4

REPORT INFORMATION
  Report Type: 
  Country: None (occurrence: None)
  Receive Date: 20061221
  Receipt Date: 20061215
  Transmission Date: 20070319
  Serious: Yes (Hospitalization)
  Sender: FDA-Public Use
  Company Number: FR-GLAXOSMITHKLINE-B0450815A

PATIENT
  Age: 85 Year
  Sex: Female
  Weight: 150 kg

DRUGS (5)
  1. ZANTAC [Suspect]
     Dosage: 50MG PER DAY
     Route: 042
     Dates: end: 20061011
  2. POLARAMINE [Suspect]
     Dosage: 5MG PER DAY
     Route: 042
     Dates: end: 20061011
  3. TAXOL [Suspect]
     Indication: BREAST CANCER FEMALE
     Dosage: 250MG PER DAY
     Route: 042
     Dates: end: 20061011
  4. HERCEPTIN [Suspect]
     Indication: BREAST CANCER FEMALE
     Dosage: 800MG PER DAY
     Route: 042
     Dates: end: 20061011
  5. SOLU-MEDROL [Suspect]
     Dosage: 120MG PER DAY
     Route: 042
     Dates: end: 20061011

REACTIONS (6)
  - CARDIAC FAILURE [None]
  - CONDITION AGGRAVATED [None]
  - HYPERTENSION [None]
  - PULMONARY OEDEMA [None]
  - SUPRAVENTRICULAR EXTRASYSTOLES [None]
  - VENTRICULAR EXTRASYSTOLES [None]
